FAERS Safety Report 14795290 (Version 3)
Quarter: 2018Q2

REPORT INFORMATION
  Report Type: Spontaneous
  Country: US (occurrence: US)
  Receive Date: 20180423
  Receipt Date: 20180614
  Transmission Date: 20180711
  Serious: Yes (Hospitalization)
  Sender: FDA-Public Use
  Company Number: US-ACTELION-A-NJ2018-170840

PATIENT
  Age: 43 Year
  Sex: Female
  Weight: 152.38 kg

DRUGS (14)
  1. ALBUTEROL. [Concomitant]
     Active Substance: ALBUTEROL
  2. TYLENOL [Concomitant]
     Active Substance: ACETAMINOPHEN
  3. REMODULIN [Concomitant]
     Active Substance: TREPROSTINIL
     Dosage: 0.020 NG/KG, PER MIN
     Dates: start: 20180202
  4. REVATIO [Concomitant]
     Active Substance: SILDENAFIL CITRATE
  5. SPIRIVA [Concomitant]
     Active Substance: TIOTROPIUM BROMIDE MONOHYDRATE
  6. WARFARIN [Concomitant]
     Active Substance: WARFARIN
  7. JANUVIA [Concomitant]
     Active Substance: SITAGLIPTIN PHOSPHATE
  8. ADVAIR HFA [Concomitant]
     Active Substance: FLUTICASONE PROPIONATE\SALMETEROL XINAFOATE
  9. ZYRTEC [Concomitant]
     Active Substance: CETIRIZINE HYDROCHLORIDE
  10. ADEMPAS [Concomitant]
     Active Substance: RIOCIGUAT
  11. OPSUMIT [Suspect]
     Active Substance: MACITENTAN
     Indication: PULMONARY ARTERIAL HYPERTENSION
     Dosage: 10 MG, QD
     Route: 048
     Dates: start: 20180302, end: 20180517
  12. GABAPENTIN. [Concomitant]
     Active Substance: GABAPENTIN
  13. FLONASE [Concomitant]
     Active Substance: FLUTICASONE PROPIONATE
  14. SIMVASTATIN. [Concomitant]
     Active Substance: SIMVASTATIN

REACTIONS (4)
  - Hypersensitivity [Unknown]
  - Condition aggravated [Unknown]
  - Fluid retention [Unknown]
  - Oedema [Unknown]

NARRATIVE: CASE EVENT DATE: 20180504
